FAERS Safety Report 14320348 (Version 1)
Quarter: 2017Q4

REPORT INFORMATION
  Report Type: Not Available
  Country: US (occurrence: US)
  Receive Date: 20171222
  Receipt Date: 20171222
  Transmission Date: 20180321
  Serious: No
  Sender: FDA-Public Use
  Company Number: US-NEUROCRINE BIOSCIENCES INC.-2017NBI01313

PATIENT
  Age: 73 Year
  Sex: Female
  Weight: 54.48 kg

DRUGS (17)
  1. CARVEDILOL. [Concomitant]
     Active Substance: CARVEDILOL
  2. REMERON [Concomitant]
     Active Substance: MIRTAZAPINE
  3. INGREZZA [Suspect]
     Active Substance: VALBENAZINE
     Indication: TARDIVE DYSKINESIA
     Route: 048
     Dates: start: 20171010, end: 20171017
  4. VITAMIN D [Concomitant]
     Active Substance: CHOLECALCIFEROL
  5. PRIMIDONE. [Concomitant]
     Active Substance: PRIMIDONE
  6. LIPITOR [Concomitant]
     Active Substance: ATORVASTATIN CALCIUM
  7. EFFEXOR [Concomitant]
     Active Substance: VENLAFAXINE HYDROCHLORIDE
  8. LEXAPRO [Concomitant]
     Active Substance: ESCITALOPRAM OXALATE
  9. INGREZZA [Suspect]
     Active Substance: VALBENAZINE
     Route: 048
     Dates: start: 20171018
  10. LOSARTAN. [Concomitant]
     Active Substance: LOSARTAN
  11. ABILIFY [Concomitant]
     Active Substance: ARIPIPRAZOLE
  12. FEMARA [Concomitant]
     Active Substance: LETROZOLE
  13. PROLIA [Concomitant]
     Active Substance: DENOSUMAB
  14. PRESERVATION VITAMINS [Concomitant]
  15. CEPHALEXIN. [Concomitant]
     Active Substance: CEPHALEXIN
     Dosage: BEFORE DENTAL WORK
  16. ASPIRIN. [Concomitant]
     Active Substance: ASPIRIN
  17. CALCIUM [Concomitant]
     Active Substance: CALCIUM

REACTIONS (2)
  - Urticaria [Not Recovered/Not Resolved]
  - Drug effect incomplete [None]

NARRATIVE: CASE EVENT DATE: 201710
